FAERS Safety Report 15222421 (Version 1)
Quarter: 2018Q3

REPORT INFORMATION
  Report Type: Spontaneous
  Country: US (occurrence: US)
  Receive Date: 20180705
  Receipt Date: 20180705
  Transmission Date: 20181010
  Serious: Yes (Life-Threatening)
  Sender: FDA-Public Use
  Company Number: None

PATIENT
  Age: 56 Year
  Sex: Male
  Weight: 94 kg

DRUGS (1)
  1. SUGAMMADEX [Suspect]
     Active Substance: SUGAMMADEX
     Indication: SURGERY
     Route: 042
     Dates: start: 20180412, end: 20180412

REACTIONS (4)
  - Hypotension [None]
  - Sinus tachycardia [None]
  - Bradycardia [None]
  - Atrioventricular block complete [None]

NARRATIVE: CASE EVENT DATE: 20180412
